FAERS Safety Report 5325397-X (Version None)
Quarter: 2007Q2

REPORT INFORMATION
  Report Type: 
  Country: None (occurrence: None)
  Receive Date: 20070509
  Receipt Date: 20070427
  Transmission Date: 20071010
  Serious: Yes (Hospitalization)
  Sender: FDA-Public Use
  Company Number: 2007BI009514

PATIENT
  Age: 58 Year
  Sex: Female

DRUGS (3)
  1. AVONEX [Suspect]
     Indication: MULTIPLE SCLEROSIS
     Dosage: 15 UG;QW; IM
     Route: 030
     Dates: start: 19990201
  2. AVONEX [Suspect]
     Indication: MULTIPLE SCLEROSIS
     Dosage: 15 UG;QW; IM
     Route: 030
     Dates: start: 20070127, end: 20070301
  3. PROZAC [Concomitant]

REACTIONS (4)
  - DEPRESSION [None]
  - MULTIPLE SCLEROSIS RELAPSE [None]
  - POST PROCEDURAL HAEMORRHAGE [None]
  - UTERINE DILATION AND CURETTAGE [None]
